FAERS Safety Report 8189056 (Version 4)
Quarter: 2012Q4

REPORT INFORMATION
  Report Type: Report from Study
  Country: IN (occurrence: US)
  Receive Date: 20111019
  Receipt Date: 20120904
  Transmission Date: 20130627
  Serious: Yes (Death, Hospitalization, Other)
  Sender: FDA-Public Use
  Company Number: US-BRISTOL-MYERS SQUIBB COMPANY-14216303

PATIENT
  Age: 88 Year
  Sex: Male

DRUGS (14)
  1. IPILIMUMAB [Suspect]
     Indication: MALIGNANT MELANOMA
     Route: 042
     Dates: start: 20071130, end: 20080519
  2. LEVOTHYROXINE [Concomitant]
     Dosage: 1 Tablet daily
  3. UROXATRAL [Concomitant]
  4. PREDNISONE [Concomitant]
     Dosage: Also 40mg
     Route: 048
     Dates: end: 20080521
  5. ANDROGEN [Concomitant]
     Dosage: Dosage form = Injection
     Dates: end: 20080521
  6. AVODART [Concomitant]
     Route: 048
  7. LEVAQUIN [Concomitant]
     Dates: start: 20080524
  8. METHIONINE [Concomitant]
     Dates: start: 20080524
  9. LASIX [Concomitant]
     Dates: start: 20080524
  10. METOPROLOL [Concomitant]
     Dates: start: 20080524
  11. LEXAPRO [Concomitant]
     Dates: start: 20080525
  12. MAGNESIUM OXIDE [Concomitant]
     Dates: start: 20080527
  13. AMIODARONE [Concomitant]
     Dates: start: 20080528
  14. K-DUR [Concomitant]
     Dates: start: 20080527

REACTIONS (4)
  - Pneumonia [Fatal]
  - Ventricular tachycardia [Recovered/Resolved with Sequelae]
  - Urinary tract infection [Recovered/Resolved]
  - Proctitis [Recovered/Resolved]
